FAERS Safety Report 19808010 (Version 3)
Quarter: 2021Q4

REPORT INFORMATION
  Report Type: Spontaneous
  Country: US (occurrence: US)
  Receive Date: 20210909
  Receipt Date: 20211103
  Transmission Date: 20220303
  Serious: Yes (Hospitalization)
  Sender: FDA-Public Use
  Company Number: US-CELGENE-USA-20210901003

PATIENT
  Age: 31 Year
  Sex: Male

DRUGS (11)
  1. REVLIMID [Suspect]
     Active Substance: LENALIDOMIDE
     Indication: T-cell lymphoma
     Dosage: 15 MILLIGRAM
     Route: 048
     Dates: start: 20210708, end: 20210813
  2. REVLIMID [Suspect]
     Active Substance: LENALIDOMIDE
     Dosage: 15 MILLIGRAM
     Route: 048
     Dates: start: 20210818, end: 20210819
  3. REVLIMID [Suspect]
     Active Substance: LENALIDOMIDE
     Dosage: 15 MILLIGRAM
     Route: 048
     Dates: start: 20210914, end: 20210917
  4. REVLIMID [Suspect]
     Active Substance: LENALIDOMIDE
     Dosage: 15 MILLIGRAM
     Route: 048
     Dates: start: 20211019
  5. AZACITIDINE [Suspect]
     Active Substance: AZACITIDINE
     Indication: Adult T-cell lymphoma/leukaemia
     Route: 048
     Dates: start: 20210720
  6. AZACITIDINE [Suspect]
     Active Substance: AZACITIDINE
     Route: 048
     Dates: start: 20210914, end: 20210917
  7. AZACITIDINE [Suspect]
     Active Substance: AZACITIDINE
     Route: 048
     Dates: start: 20211019
  8. ROMIDEPSIN [Suspect]
     Active Substance: ROMIDEPSIN
     Indication: Adult T-cell lymphoma/leukaemia
     Route: 041
     Dates: start: 20210720
  9. DEXAMETHASONE [Suspect]
     Active Substance: DEXAMETHASONE
     Indication: Adult T-cell lymphoma/leukaemia
     Route: 048
     Dates: start: 20210720
  10. VALACYCLOVIR [Concomitant]
     Active Substance: VALACYCLOVIR HYDROCHLORIDE
     Indication: Antifungal prophylaxis
     Dosage: 800 MILLIGRAM
     Route: 065
  11. ALLOPURINOL [Concomitant]
     Active Substance: ALLOPURINOL
     Indication: Prophylaxis
     Dosage: 300 MILLIGRAM
     Route: 048

REACTIONS (1)
  - Rhabdomyolysis [Recovered/Resolved]

NARRATIVE: CASE EVENT DATE: 20210804
